FAERS Safety Report 4706492-2 (Version None)
Quarter: 2005Q3

REPORT INFORMATION
  Report Type: 
  Country: None (occurrence: None)
  Receive Date: 20050705
  Receipt Date: 20050624
  Transmission Date: 20060218
  Serious: Yes (Hospitalization)
  Sender: FDA-Public Use
  Company Number: FR-GLAXOSMITHKLINE-B0386165A

PATIENT
  Age: 76 Year
  Sex: Male

DRUGS (5)
  1. AUGMENTIN '125' [Suspect]
     Indication: ILL-DEFINED DISORDER
     Dosage: 1G TWICE PER DAY
     Route: 048
     Dates: start: 20030201, end: 20030207
  2. AUGMENTIN '125' [Suspect]
     Indication: ILL-DEFINED DISORDER
     Dosage: 1G THREE TIMES PER DAY
     Route: 042
     Dates: start: 20030126, end: 20030130
  3. LOVENOX [Suspect]
     Route: 058
     Dates: start: 20030126, end: 20030209
  4. PERFALGAN [Concomitant]
     Dosage: 1G THREE TIMES PER DAY
     Route: 042
     Dates: start: 20030126, end: 20030127
  5. DI ANTALVIC [Concomitant]
     Dosage: 2UNIT THREE TIMES PER DAY
     Route: 048
     Dates: start: 20030130, end: 20030206

REACTIONS (3)
  - ANGIONEUROTIC OEDEMA [None]
  - PRURITUS [None]
  - URTICARIA [None]
